FAERS Safety Report 16081363 (Version 2)
Quarter: 2019Q1

REPORT INFORMATION
  Report Type: Spontaneous
  Country: AU (occurrence: AU)
  Receive Date: 20190316
  Receipt Date: 20190327
  Transmission Date: 20190418
  Serious: Yes (Hospitalization)
  Sender: FDA-Public Use
  Company Number: AU-IPSEN BIOPHARMACEUTICALS, INC.-2019-03754

PATIENT
  Age: 55 Year
  Sex: Female

DRUGS (7)
  1. DYSPORT [Suspect]
     Active Substance: ABOBOTULINUMTOXINA
     Indication: OFF LABEL USE
  2. DYSPORT [Suspect]
     Active Substance: ABOBOTULINUMTOXINA
     Indication: SKIN WRINKLING
     Dosage: 120 IU: 40 UNITS IN GLABELLA, 30 IU IN FRONTALIS, 25 IU IN ORBICULARIS OCULI ON EACH SIDE
     Route: 065
     Dates: start: 20190124, end: 20190124
  3. VITAMIN D [Concomitant]
     Active Substance: CHOLECALCIFEROL
  4. IRON [Concomitant]
     Active Substance: IRON
  5. DYSPORT [Suspect]
     Active Substance: ABOBOTULINUMTOXINA
     Indication: SKIN WRINKLING
  6. DYSPORT [Suspect]
     Active Substance: ABOBOTULINUMTOXINA
     Indication: SKIN WRINKLING
  7. RESTYLANE [Suspect]
     Active Substance: HYALURONIC ACID
     Indication: SKIN WRINKLING
     Dosage: L 0.4 ML/R 0.6 ML
     Dates: start: 20190124, end: 20190124

REACTIONS (21)
  - Pain [Unknown]
  - Headache [Recovered/Resolved]
  - Head discomfort [Unknown]
  - Bone pain [Unknown]
  - Hypoaesthesia [Unknown]
  - Lethargy [Unknown]
  - Eyelid ptosis [Unknown]
  - Musculoskeletal pain [Unknown]
  - Tension [Unknown]
  - Off label use [Unknown]
  - Headache [Unknown]
  - Prescribed overdose [Unknown]
  - Malaise [Not Recovered/Not Resolved]
  - Injection site mass [Unknown]
  - Paraesthesia [Unknown]
  - Myalgia [Unknown]
  - Movement disorder [Unknown]
  - Feeling abnormal [Unknown]
  - Dizziness [Unknown]
  - General physical health deterioration [Unknown]
  - Visual impairment [Unknown]

NARRATIVE: CASE EVENT DATE: 20190124
